FAERS Safety Report 22522551 (Version 2)
Quarter: 2023Q2

REPORT INFORMATION
  Report Type: Report from Study
  Country: US (occurrence: US)
  Receive Date: 20230605
  Receipt Date: 20230607
  Transmission Date: 20230722
  Serious: No
  Sender: FDA-Public Use
  Company Number: US-002147023-NVSC2023US127349

PATIENT
  Sex: Female

DRUGS (1)
  1. KESIMPTA [Suspect]
     Active Substance: OFATUMUMAB
     Indication: Product used for unknown indication
     Dosage: UNK
     Route: 065

REACTIONS (6)
  - Condition aggravated [Unknown]
  - Dyspnoea [Unknown]
  - Speech disorder [Unknown]
  - Oropharyngeal discomfort [Unknown]
  - Inappropriate schedule of product administration [Unknown]
  - Wrong technique in device usage process [Unknown]
